FAERS Safety Report 6326382-1 (Version None)
Quarter: 2009Q3

REPORT INFORMATION
  Report Type: 
  Country: None (occurrence: None)
  Receive Date: 20090821
  Receipt Date: 20090806
  Transmission Date: 20100115
  Serious: Yes (Hospitalization)
  Sender: FDA-Public Use
  Company Number: 001459

PATIENT
  Age: 74 Year
  Sex: Male

DRUGS (2)
  1. BICALUTAMIDE [Suspect]
     Indication: PROSTATE CANCER
     Dosage: 80 MG QD
  2. GONADOTROPHINE RELEASING HORMONE ANALOGUES [Concomitant]

REACTIONS (3)
  - METASTASES TO LYMPH NODES [None]
  - NEOPLASM RECURRENCE [None]
  - PROSTATIC SPECIFIC ANTIGEN INCREASED [None]
